FAERS Safety Report 9543673 (Version 2)
Quarter: 2013Q3

REPORT INFORMATION
  Report Type: Report from Study
  Country: JP (occurrence: JP)
  Receive Date: 20130923
  Receipt Date: 20130923
  Transmission Date: 20140515
  Serious: Yes (Other)
  Sender: FDA-Public Use
  Company Number: JP-TAKEDA-TCI2013A02794

PATIENT
  Age: 73 Year
  Sex: Female
  Weight: 49 kg

DRUGS (25)
  1. BLINDED ALOGLIPTIN [Suspect]
     Indication: TYPE 2 DIABETES MELLITUS
     Dosage: 25 MG, QD
     Route: 048
     Dates: start: 20121018, end: 20130513
  2. INSULIN [Suspect]
     Indication: TYPE 2 DIABETES MELLITUS
     Dosage: 25 MG, QD
     Route: 048
     Dates: start: 20121018, end: 20130513
  3. PLACEBO [Suspect]
     Indication: TYPE 2 DIABETES MELLITUS
     Dosage: 25 MG, QD
     Route: 048
     Dates: start: 20121018, end: 20130513
  4. BLINDED ALOGLIPTIN [Suspect]
     Route: 048
     Dates: start: 20121019, end: 20130513
  5. INSULIN [Suspect]
     Route: 048
     Dates: start: 20121019, end: 20130513
  6. PLACEBO [Suspect]
     Route: 048
     Dates: start: 20121019, end: 20130513
  7. BLINDED [Suspect]
     Indication: TYPE 2 DIABETES MELLITUS
     Route: 048
     Dates: start: 20120727, end: 20121017
  8. BLINDED ALOGLIPTIN [Suspect]
     Indication: TYPE 2 DIABETES MELLITUS
     Route: 048
     Dates: start: 20120727, end: 20121017
  9. INSULIN [Suspect]
     Indication: TYPE 2 DIABETES MELLITUS
     Route: 048
     Dates: start: 20120727, end: 20121017
  10. PLACEBO [Suspect]
     Indication: TYPE 2 DIABETES MELLITUS
     Route: 048
     Dates: start: 20120727, end: 20121017
  11. LEVEMIR [Concomitant]
     Indication: TYPE 2 DIABETES MELLITUS
     Route: 058
     Dates: start: 20130313, end: 20130513
  12. LEVEMIR [Concomitant]
     Route: 058
  13. LEVEMIR [Concomitant]
     Route: 058
  14. ZETIA [Concomitant]
     Route: 048
     Dates: start: 20100908, end: 20130530
  15. ZETIA [Concomitant]
     Indication: DYSLIPIDAEMIA
  16. OLMETEC [Concomitant]
     Indication: HYPERTENSION
     Route: 048
     Dates: start: 20120119, end: 20130513
  17. LOXONIN [Concomitant]
     Indication: PERIARTHRITIS
     Route: 048
     Dates: start: 20100616
  18. LOXONIN [Concomitant]
     Indication: BACK PAIN
  19. LOXONIN [Concomitant]
     Indication: PERIARTHRITIS
  20. MUCOSTA [Concomitant]
     Indication: GASTRITIS PROPHYLAXIS
     Route: 048
     Dates: start: 20100616
  21. MAGLAX [Concomitant]
     Indication: CONSTIPATION
     Route: 048
     Dates: start: 20100304
  22. MOHRUS TAPE L [Concomitant]
     Indication: BACK PAIN
     Route: 062
     Dates: start: 20100714
  23. MOHRUS TAPE L [Concomitant]
     Indication: BACK PAIN
  24. UREPEARL [Concomitant]
     Indication: HYPERKERATOSIS
     Route: 062
     Dates: start: 20121018
  25. UREPEARL [Concomitant]
     Indication: HYPERKERATOSIS

REACTIONS (1)
  - Acute myocardial infarction [Recovered/Resolved]
